FAERS Safety Report 23745955 (Version 1)
Quarter: 2024Q2

REPORT INFORMATION
  Report Type: Spontaneous
  Country: BG (occurrence: BG)
  Receive Date: 20240416
  Receipt Date: 20240416
  Transmission Date: 20240716
  Serious: Yes (Hospitalization)
  Sender: FDA-Public Use
  Company Number: BG-BoehringerIngelheim-2024-BI-021065

PATIENT
  Age: 88 Year
  Sex: Male

DRUGS (8)
  1. PRADAXA [Suspect]
     Active Substance: DABIGATRAN ETEXILATE MESYLATE
     Indication: Atrial fibrillation
  2. EMPAGLIFLOZIN [Suspect]
     Active Substance: EMPAGLIFLOZIN
     Indication: Cardiac failure chronic
     Dates: start: 20211201
  3. AMIODARONE [Concomitant]
     Active Substance: AMIODARONE
     Indication: Product used for unknown indication
     Dosage: ONCE IN THE MORNING
  4. Torasemid  200 mg [Concomitant]
     Indication: Product used for unknown indication
     Dosage: FIRST DAY- HALF TABLET IN THE MORNING; NEXT DAY- A TABLET IN THE MORNING, ETC.
  5. Spironolacton  50 mg [Concomitant]
     Indication: Product used for unknown indication
     Dosage: A TABLET IN THE MORNING
  6. Trimetazidin  35 mg [Concomitant]
     Indication: Product used for unknown indication
  7. Rosuvastatin  20 mg [Concomitant]
     Indication: Product used for unknown indication
  8. Tamsudil  0.4 mg [Concomitant]
     Indication: Product used for unknown indication

REACTIONS (1)
  - Cardiac failure congestive [Recovering/Resolving]

NARRATIVE: CASE EVENT DATE: 20220201
